FAERS Safety Report 5107771-X (Version None)
Quarter: 2006Q3

REPORT INFORMATION
  Report Type: 
  Country: None (occurrence: None)
  Receive Date: 20060914
  Receipt Date: 20060901
  Transmission Date: 20061208
  Serious: Yes (Death)
  Sender: FDA-Public Use
  Company Number: S06-FRA-03756-01

PATIENT
  Age: 72 Year
  Sex: Male

DRUGS (2)
  1. SEROPLEX (ESCITALOPRAM) [Suspect]
     Indication: MAJOR DEPRESSION
     Dosage: 10 MG QD PO
     Route: 048
     Dates: start: 20060101
  2. URBANYL (CLOBAZAM) [Suspect]
     Dates: start: 20060101

REACTIONS (2)
  - COMPLETED SUICIDE [None]
  - GUN SHOT WOUND [None]
